FAERS Safety Report 18410282 (Version 1)
Quarter: 2020Q4

REPORT INFORMATION
  Report Type: Spontaneous
  Country: HR (occurrence: HR)
  Receive Date: 20201021
  Receipt Date: 20201021
  Transmission Date: 20210114
  Serious: Yes (Other)
  Sender: FDA-Public Use
  Company Number: HR-PFIZER INC-2020401870

PATIENT
  Age: 40 Year
  Sex: Female

DRUGS (5)
  1. OXAZEPAM. [Suspect]
     Active Substance: OXAZEPAM
     Dosage: 3 DF, 1X/DAY
     Route: 048
     Dates: start: 20200902, end: 20200903
  2. EGLONYL [Suspect]
     Active Substance: SULPIRIDE
     Dosage: 3 DF, 1X/DAY
     Route: 048
     Dates: start: 20200902, end: 20200903
  3. MISAR [ALPRAZOLAM] [Suspect]
     Active Substance: ALPRAZOLAM
     Dosage: 1.5 MG, 1X/DAY
     Route: 048
     Dates: start: 20200902, end: 20200903
  4. PREGABALIN. [Suspect]
     Active Substance: PREGABALIN
     Dosage: 450 MG, DAILY
     Route: 048
     Dates: start: 20200902, end: 20200903
  5. CYMBALTA [Suspect]
     Active Substance: DULOXETINE HYDROCHLORIDE
     Dosage: 3 DF, 1X/DAY
     Route: 048
     Dates: start: 20200902, end: 20200903

REACTIONS (2)
  - Somnolence [Unknown]
  - Suicide attempt [Unknown]

NARRATIVE: CASE EVENT DATE: 20200902
